FAERS Safety Report 19156733 (Version 1)
Quarter: 2021Q2

REPORT INFORMATION
  Report Type: Spontaneous
  Country: NL (occurrence: NL)
  Receive Date: 20210420
  Receipt Date: 20210420
  Transmission Date: 20210717
  Serious: Yes (Other)
  Sender: FDA-Public Use
  Company Number: NL-SUN PHARMACEUTICAL INDUSTRIES LTD-2021R1-292184

PATIENT
  Age: 14 Year
  Sex: Male

DRUGS (2)
  1. CERITINIB [Interacting]
     Active Substance: CERITINIB
     Indication: INFLAMMATORY MYOFIBROBLASTIC TUMOUR
     Dosage: 450 MILLIGRAM/SQ. METER, DAILY
     Route: 065
  2. PARACETAMOL SUN [Suspect]
     Active Substance: ACETAMINOPHEN
     Indication: ABDOMINAL PAIN
     Dosage: UNK
     Route: 065

REACTIONS (3)
  - Renal failure [Recovered/Resolved]
  - Liver injury [Recovered/Resolved]
  - Drug interaction [Recovered/Resolved]
